FAERS Safety Report 4289849-6 (Version None)
Quarter: 2004Q1

REPORT INFORMATION
  Report Type: 
  Country: None (occurrence: None)
  Receive Date: 20040209
  Receipt Date: 20040128
  Transmission Date: 20041129
  Serious: Yes (Hospitalization)
  Sender: FDA-Public Use
  Company Number: WAES 0312USA01752

PATIENT
  Age: 77 Year
  Sex: Female
  Weight: 51.7101 kg

DRUGS (3)
  1. TAB ALDOCLOR UNK [Suspect]
     Dosage: PO
     Route: 048
  2. BLINDED THERAPY UNK [Suspect]
     Indication: ESSENTIAL HYPERTENSION
     Dates: start: 19991002
  3. NITROGLYCERIN [Concomitant]

REACTIONS (6)
  - ANOREXIA [None]
  - NAUSEA [None]
  - NECK PAIN [None]
  - PAIN [None]
  - SYNCOPE [None]
  - VOMITING [None]
